FAERS Safety Report 6679564-3 (Version None)
Quarter: 2010Q2

REPORT INFORMATION
  Report Type: 
  Country: None (occurrence: None)
  Receive Date: 20100408
  Receipt Date: 20090804
  Transmission Date: 20101027
  Serious: No
  Sender: FDA-Public Use
  Company Number: 2009-00502

PATIENT
  Age: 67 Year
  Sex: Female
  Weight: 64.4108 kg

DRUGS (2)
  1. ZICAM COLD REMEDY RAPIDMELTS WITH VITAMIN C [Suspect]
     Dosage: QID - 10 DAYS
     Dates: start: 20090501, end: 20090501
  2. ATENOLOL [Concomitant]

REACTIONS (2)
  - AGEUSIA [None]
  - ANOSMIA [None]
